FAERS Safety Report 9515678 (Version 6)
Quarter: 2016Q1

REPORT INFORMATION
  Report Type: Spontaneous
  Country: US (occurrence: US)
  Receive Date: 20130911
  Receipt Date: 20160321
  Transmission Date: 20160526
  Serious: Yes (Hospitalization, Disabling, Other)
  Sender: FDA-Public Use
  Company Number: US-009507513-1309USA003612

PATIENT
  Sex: Female

DRUGS (3)
  1. ALENDRONATE SODIUM. [Suspect]
     Active Substance: ALENDRONATE SODIUM
     Indication: OSTEOPOROSIS
     Dosage: 70 MG, UNK
     Route: 065
     Dates: start: 20110201, end: 201109
  2. ALENDRONATE SODIUM. [Suspect]
     Active Substance: ALENDRONATE SODIUM
     Indication: OSTEOPOROSIS
     Dosage: 70 MG, UNK
     Route: 065
     Dates: start: 20120202, end: 201210
  3. FOSAMAX [Suspect]
     Active Substance: ALENDRONATE SODIUM
     Indication: OSTEOPOROSIS
     Dosage: 70 MG, QW
     Route: 048
     Dates: start: 2000, end: 2011

REACTIONS (18)
  - Basal cell carcinoma [Unknown]
  - Hypertension [Unknown]
  - Hernia [Unknown]
  - Osteoarthritis [Unknown]
  - Limb injury [Unknown]
  - Arthritis [Unknown]
  - Femur fracture [Recovering/Resolving]
  - Road traffic accident [Unknown]
  - Gastrooesophageal reflux disease [Unknown]
  - Hyperlipidaemia [Unknown]
  - Hypercalcaemia [Unknown]
  - Femur fracture [Unknown]
  - Femur fracture [Not Recovered/Not Resolved]
  - Tooth infection [Unknown]
  - Impaired healing [Unknown]
  - Diabetes mellitus [Unknown]
  - Hysterectomy [Unknown]
  - Developmental hip dysplasia [Unknown]

NARRATIVE: CASE EVENT DATE: 2000
